FAERS Safety Report 10084960 (Version 1)
Quarter: 2014Q2

REPORT INFORMATION
  Report Type: Spontaneous
  Country: GB (occurrence: GB)
  Receive Date: 20140417
  Receipt Date: 20140417
  Transmission Date: 20141212
  Serious: Yes (Other)
  Sender: FDA-Public Use
  Company Number: GB-TEVA-473916ISR

PATIENT
  Age: 53 Year
  Sex: Female
  Weight: 60 kg

DRUGS (2)
  1. AMITRIPTYLINE [Suspect]
     Dates: start: 20140325
  2. CEFALEXIN [Concomitant]
     Dates: start: 20140205, end: 20140212

REACTIONS (1)
  - Haematuria [Recovered/Resolved]
